FAERS Safety Report 15010996 (Version 1)
Quarter: 2018Q2

REPORT INFORMATION
  Report Type: Spontaneous
  Country: US (occurrence: US)
  Receive Date: 20180614
  Receipt Date: 20180614
  Transmission Date: 20180711
  Serious: No
  Sender: FDA-Public Use
  Company Number: US-PERRIGO-17US026813

PATIENT
  Age: 57 Year
  Sex: Female
  Weight: 72.56 kg

DRUGS (4)
  1. METOPROLOL. [Concomitant]
     Active Substance: METOPROLOL
     Indication: HYPERTENSION
     Dosage: UNKNOWN, UNKNOWN
     Route: 048
  2. PREDNISONE. [Concomitant]
     Active Substance: PREDNISONE
     Indication: RENAL FAILURE
     Dosage: UNKNOWN, UNKNOWN
     Route: 065
  3. GENTAMICIN SULFATE. [Suspect]
     Active Substance: GENTAMICIN SULFATE
     Indication: ROUTINE HEALTH MAINTENANCE
     Dosage: ONE APPLICATION, QD
     Route: 061
     Dates: start: 20170717, end: 20170913
  4. SODIUM BICARBONATE. [Concomitant]
     Active Substance: SODIUM BICARBONATE
     Indication: RENAL FAILURE
     Dosage: UNKNOWN, UNKNOWN
     Route: 065

REACTIONS (2)
  - Tinnitus [Not Recovered/Not Resolved]
  - Inappropriate schedule of drug administration [Recovered/Resolved]

NARRATIVE: CASE EVENT DATE: 2017
